FAERS Safety Report 24008315 (Version 3)
Quarter: 2024Q3

REPORT INFORMATION
  Report Type: Report from Study
  Country: US (occurrence: US)
  Receive Date: 20240625
  Receipt Date: 20240913
  Transmission Date: 20241017
  Serious: Yes (Hospitalization)
  Sender: ACADIA PHARMACEUTICALS
  Company Number: US-ACADIA PHARMACEUTICALS INC.-ACA-2024-PIM-002676

PATIENT
  Sex: Male

DRUGS (8)
  1. NUPLAZID [Suspect]
     Active Substance: PIMAVANSERIN TARTRATE
     Indication: Parkinson^s disease psychosis
     Dosage: 34 MILLIGRAM, QD
     Route: 048
  2. NUPLAZID [Suspect]
     Active Substance: PIMAVANSERIN TARTRATE
     Dosage: 34 MILLIGRAM, QD
     Route: 048
  3. NUPLAZID [Suspect]
     Active Substance: PIMAVANSERIN TARTRATE
     Dosage: 34 MILLIGRAM, QD
     Route: 048
  4. TRAZODONE [Concomitant]
     Active Substance: TRAZODONE HYDROCHLORIDE
  5. ALPRAZOLAM [Concomitant]
     Active Substance: ALPRAZOLAM
  6. CARBIDOPA\LEVODOPA [Concomitant]
     Active Substance: CARBIDOPA\LEVODOPA
  7. SEROQUEL [Concomitant]
     Active Substance: QUETIAPINE FUMARATE
  8. ELIQUIS [Concomitant]
     Active Substance: APIXABAN

REACTIONS (3)
  - General physical health deterioration [Recovered/Resolved]
  - Memory impairment [Unknown]
  - Hallucination, visual [Not Recovered/Not Resolved]
